FAERS Safety Report 8175523 (Version 2)
Quarter: 2013Q2

REPORT INFORMATION
  Report Type: Report from Study
  Country: MX (occurrence: MX)
  Receive Date: 20111011
  Receipt Date: 20130506
  Transmission Date: 20140414
  Serious: Yes (Death, Other)
  Sender: FDA-Public Use
  Company Number: PHHY2011MX89069

PATIENT
  Sex: Female

DRUGS (1)
  1. STALEVO [Suspect]
     Indication: PARKINSON^S DISEASE
     Dosage: 2 DF, (LEVODOPA 200 MG/CARBIDOPA 100 MG/ENTACAPONE 25 MG)
     Route: 048

REACTIONS (2)
  - Death [Fatal]
  - Intestinal perforation [Unknown]
